FAERS Safety Report 5844794-7 (Version None)
Quarter: 2008Q3

REPORT INFORMATION
  Report Type: 
  Country: None (occurrence: None)
  Receive Date: 20080814
  Receipt Date: 20080807
  Transmission Date: 20090109
  Serious: Yes (Other)
  Sender: FDA-Public Use
  Company Number: US-ALLERGAN-0808954US

PATIENT
  Sex: Female
  Weight: 65.76 kg

DRUGS (20)
  1. BOTOX [Suspect]
     Indication: BLEPHAROSPASM
     Dosage: 40 UNITS, SINGLE
     Route: 030
     Dates: start: 20050407, end: 20050407
  2. BOTOX [Suspect]
     Dosage: 41 UNITS, SINGLE
     Route: 030
     Dates: start: 20050811, end: 20050811
  3. BOTOX [Suspect]
     Dosage: 43 UNITS, SINGLE
     Route: 030
     Dates: start: 20051202, end: 20051202
  4. BOTOX [Suspect]
     Dosage: 46 UNITS, SINGLE
     Route: 030
     Dates: start: 20060526
  5. BOTOX [Suspect]
     Dosage: 46 UNITS, SINGLE
     Route: 030
     Dates: start: 20070308, end: 20070308
  6. BOTOX [Suspect]
     Dosage: 47.5 UNITS, SINGLE
     Route: 030
     Dates: start: 20070703, end: 20070703
  7. BOTOX [Suspect]
     Dosage: 50 UNITS, SINGLE
     Route: 030
     Dates: start: 20071022, end: 20071022
  8. BOTOX [Suspect]
     Dosage: 47.5 UNITS, SINGLE
     Route: 030
     Dates: start: 20080201, end: 20080201
  9. RESTASIS [Concomitant]
     Indication: DRY EYE
  10. ZOCOR [Concomitant]
     Dosage: 20 MG, QD
  11. MULTI-VITAMINS [Concomitant]
  12. VITAMIN B [Concomitant]
  13. ASCORBIC ACID [Concomitant]
  14. FISH OIL [Concomitant]
  15. EVENING PRIMROSE OIL [Concomitant]
  16. VITAMIN E [Concomitant]
  17. ASPIRIN [Concomitant]
     Dosage: 81 MG, UNK
  18. MAGNESIUM SULFATE [Concomitant]
  19. POTASSIUM CHLORIDE [Concomitant]
  20. FLAXSEED OIL [Concomitant]

REACTIONS (6)
  - FACIAL PAIN [None]
  - INFLUENZA LIKE ILLNESS [None]
  - INJECTION SITE HAEMATOMA [None]
  - INJECTION SITE PAIN [None]
  - MUSCLE DISORDER [None]
  - PYREXIA [None]
